FAERS Safety Report 7168838-8 (Version None)
Quarter: 2010Q4

REPORT INFORMATION
  Report Type: 
  Country: None (occurrence: None)
  Receive Date: 20101216
  Receipt Date: 20100302
  Transmission Date: 20110411
  Serious: No
  Sender: FDA-Public Use
  Company Number: US-AMGEN-TCS384471

PATIENT

DRUGS (1)
  1. ENBREL [Suspect]
     Indication: RHEUMATOID ARTHRITIS
     Dosage: 50 MG, QWK
     Route: 058
     Dates: start: 20091116

REACTIONS (10)
  - ASTHENIA [None]
  - DYSPNOEA [None]
  - EXOSTOSIS [None]
  - INJECTION SITE ERYTHEMA [None]
  - INJECTION SITE PAIN [None]
  - INJECTION SITE SWELLING [None]
  - MOBILITY DECREASED [None]
  - NASOPHARYNGITIS [None]
  - PALPITATIONS [None]
  - RHEUMATOID ARTHRITIS [None]
